FAERS Safety Report 20148217 (Version 2)
Quarter: 2021Q4

REPORT INFORMATION
  Report Type: Report from Study
  Country: US (occurrence: US)
  Receive Date: 20211204
  Receipt Date: 20211208
  Transmission Date: 20220303
  Serious: No
  Sender: FDA-Public Use
  Company Number: US-NOVARTISTESTPH-NVSC2021US275007

PATIENT
  Sex: Female

DRUGS (2)
  1. ENTRESTO [Suspect]
     Active Substance: SACUBITRIL\VALSARTAN
     Indication: Weight decreased
     Dosage: 48.6 MG SACUBITRIL AND 51.4 MG VALSARTAN, Q12H
     Route: 048
     Dates: start: 20210720
  2. ENTRESTO [Suspect]
     Active Substance: SACUBITRIL\VALSARTAN
     Indication: Dyspnoea

REACTIONS (2)
  - Weight decreased [Unknown]
  - Product use in unapproved indication [Unknown]
